FAERS Safety Report 25554791 (Version 1)
Quarter: 2025Q3

REPORT INFORMATION
  Report Type: Spontaneous
  Country: US (occurrence: None)
  Receive Date: 20250714
  Receipt Date: 20250714
  Transmission Date: 20251020
  Serious: Yes (Hospitalization)
  Sender: FDA-CTU
  Company Number: None

PATIENT
  Sex: Female

DRUGS (1)
  1. AMBRISENTAN [Suspect]
     Active Substance: AMBRISENTAN
     Indication: Chronic obstructive pulmonary disease
     Dosage: FREQUENCY : DAILY;?
     Route: 048
     Dates: start: 20221129

REACTIONS (1)
  - Hospitalisation [None]
